FAERS Safety Report 11561257 (Version 1)
Quarter: 2015Q3

REPORT INFORMATION
  Report Type: Spontaneous
  Country: FR (occurrence: FR)
  Receive Date: 20150928
  Receipt Date: 20150928
  Transmission Date: 20151125
  Serious: Yes (Hospitalization)
  Sender: FDA-Public Use
  Company Number: FR-JNJFOC-20150915407

PATIENT
  Age: 31 Year
  Sex: Female

DRUGS (2)
  1. LOXAPAC [Concomitant]
     Active Substance: LOXAPINE SUCCINATE
  2. XEPLION [Suspect]
     Active Substance: PALIPERIDONE PALMITATE
     Indication: PRODUCT USED FOR UNKNOWN INDICATION
     Route: 030
     Dates: start: 201507

REACTIONS (3)
  - Psychiatric symptom [Unknown]
  - Abnormal behaviour [Unknown]
  - Injection site induration [Unknown]
